FAERS Safety Report 9323583 (Version 2)
Quarter: 2013Q4

REPORT INFORMATION
  Report Type: Spontaneous
  Country: CA (occurrence: CA)
  Receive Date: 20130603
  Receipt Date: 20131226
  Transmission Date: 20140711
  Serious: Yes (Hospitalization, Other)
  Sender: FDA-Public Use
  Company Number: CA-ROCHE-1229913

PATIENT
  Sex: Male

DRUGS (6)
  1. XOLAIR [Suspect]
     Indication: ASTHMA
     Route: 058
     Dates: start: 20120418
  2. XOLAIR [Suspect]
     Route: 065
     Dates: start: 20121227
  3. VENTOLINE [Concomitant]
  4. PREDNISONE [Concomitant]
  5. ALVESCO [Concomitant]
  6. ADVAIR [Concomitant]

REACTIONS (7)
  - Pneumonia [Unknown]
  - Dyspnoea [Unknown]
  - Blood pressure fluctuation [Unknown]
  - Tachypnoea [Unknown]
  - Wheezing [Unknown]
  - Fatigue [Unknown]
  - Asthenia [Unknown]
